FAERS Safety Report 21680486 (Version 1)
Quarter: 2022Q4

REPORT INFORMATION
  Report Type: Spontaneous
  Country: US (occurrence: US)
  Receive Date: 20221205
  Receipt Date: 20221205
  Transmission Date: 20230113
  Serious: Yes (Other)
  Sender: FDA-Public Use
  Company Number: US-SABAL THERAPEUTICS LLC-2022-ATH-000026

PATIENT

DRUGS (1)
  1. OZOBAX [Suspect]
     Active Substance: BACLOFEN
     Indication: Muscle spasms
     Route: 065

REACTIONS (8)
  - Toxicity to various agents [Recovered/Resolved]
  - Overdose [Recovered/Resolved]
  - Lethargy [Recovered/Resolved]
  - Unresponsive to stimuli [Recovered/Resolved]
  - Anuria [Recovered/Resolved]
  - Shock [Recovered/Resolved]
  - Mental disorder [Recovered/Resolved]
  - Seizure [Recovered/Resolved]
